FAERS Safety Report 9893694 (Version 1)
Quarter: 2014Q1

REPORT INFORMATION
  Report Type: Spontaneous
  Country: IN (occurrence: IN)
  Receive Date: 20140213
  Receipt Date: 20140213
  Transmission Date: 20141002
  Serious: Yes (Death)
  Sender: FDA-Public Use
  Company Number: PHHY2014IN015761

PATIENT
  Age: 50 Year
  Sex: 0

DRUGS (2)
  1. IMATINIB [Suspect]
     Indication: CHRONIC MYELOID LEUKAEMIA
  2. HYDREA [Concomitant]
     Dosage: UNK

REACTIONS (2)
  - Death [Fatal]
  - Drug resistance [Unknown]
